FAERS Safety Report 8223456-5 (Version None)
Quarter: 2012Q1

REPORT INFORMATION
  Report Type: 
  Country: None (occurrence: None)
  Receive Date: 20120321
  Receipt Date: 20120312
  Transmission Date: 20120608
  Serious: Yes (Hospitalization)
  Sender: FDA-Public Use
  Company Number: GB-TEVA-326119ISR

PATIENT
  Sex: Female

DRUGS (4)
  1. LEVOTHYROXINE SODIUM [Suspect]
     Indication: HYPOTHYROIDISM
     Dosage: 125 MICROGRAM;
     Route: 048
     Dates: start: 20111001, end: 20120227
  2. ADCAL-D3 [Concomitant]
     Dosage: 2 TABLET;
     Route: 048
     Dates: start: 20101001, end: 20111021
  3. NEXIUM [Concomitant]
     Dosage: 20 MILLIGRAM;
     Route: 048
     Dates: start: 20101001, end: 20111021
  4. ASPIRIN [Concomitant]
     Dosage: 75 MILLIGRAM;
     Route: 048
     Dates: end: 20111021

REACTIONS (2)
  - SYNCOPE [None]
  - ATRIAL FIBRILLATION [None]
